FAERS Safety Report 5092338-2 (Version None)
Quarter: 2006Q3

REPORT INFORMATION
  Report Type: 
  Country: None (occurrence: None)
  Receive Date: 20060825
  Receipt Date: 20060807
  Transmission Date: 20061208
  Serious: Yes (Hospitalization, Other)
  Sender: FDA-Public Use
  Company Number: US200607001233

PATIENT
  Sex: Female
  Weight: 83.4 kg

DRUGS (7)
  1. ZYPREXA [Suspect]
     Dosage: 5 MG, DAILY (1/D)
     Dates: start: 20020101, end: 20050201
  2. QUETIAPINE FUMARATE [Concomitant]
  3. RISPERIDONE [Concomitant]
  4. GEODON [Concomitant]
  5. PAXIL [Concomitant]
  6. INDERAL [Concomitant]
  7. HYDROCHLOROTHIAZIDE [Concomitant]

REACTIONS (4)
  - CARDIAC FAILURE CONGESTIVE [None]
  - CATHETERISATION CARDIAC [None]
  - DIABETES MELLITUS NON-INSULIN-DEPENDENT [None]
  - DIABETIC KETOACIDOSIS [None]
